FAERS Safety Report 21778845 (Version 1)
Quarter: 2022Q4

REPORT INFORMATION
  Report Type: Spontaneous
  Country: US (occurrence: US)
  Receive Date: 20221226
  Receipt Date: 20221226
  Transmission Date: 20230112
  Serious: No
  Sender: FDA-Public Use
  Company Number: US-BAYER-2022A168998

PATIENT
  Age: 69 Year
  Sex: Male

DRUGS (1)
  1. CIPROFLOXACIN [Suspect]
     Active Substance: CIPROFLOXACIN
     Dosage: 500 MG, BID
     Route: 048
     Dates: start: 20221204

REACTIONS (8)
  - Arthralgia [Recovered/Resolved]
  - Myalgia [Recovered/Resolved]
  - Pain of skin [Recovered/Resolved]
  - Electric shock sensation [None]
  - Muscular weakness [None]
  - Skin burning sensation [None]
  - Pyrexia [None]
  - Condition aggravated [None]
